FAERS Safety Report 5215494-1 (Version None)
Quarter: 2007Q1

REPORT INFORMATION
  Report Type: 
  Country: None (occurrence: None)
  Receive Date: 20070123
  Receipt Date: 20070112
  Transmission Date: 20070707
  Serious: Yes (Disabling)
  Sender: FDA-Public Use
  Company Number: FR-JNJFOC-20070103471

PATIENT
  Age: 29 Year
  Sex: Female

DRUGS (3)
  1. EPITOMAX [Suspect]
     Route: 048
  2. EPITOMAX [Suspect]
     Indication: EPILEPSY
     Route: 048
  3. LAMICTAL [Suspect]
     Indication: EPILEPSY
     Dosage: 200MG IN THE MORNING, 100MG AT NOON, AND 200MG IN THE EVENING.
     Route: 048

REACTIONS (3)
  - DIPLOPIA [None]
  - OPHTHALMOPLEGIA [None]
  - PARAESTHESIA [None]
